FAERS Safety Report 20786366 (Version 1)
Quarter: 2022Q2

REPORT INFORMATION
  Report Type: Spontaneous
  Country: US (occurrence: None)
  Receive Date: 20220504
  Receipt Date: 20220504
  Transmission Date: 20220721
  Serious: No
  Sender: FDA-Public Use
  Company Number: US-ROCHE-3045618

PATIENT
  Sex: Female

DRUGS (12)
  1. OCREVUS [Suspect]
     Active Substance: OCRELIZUMAB
     Indication: Relapsing-remitting multiple sclerosis
     Dosage: THE MOST RECENT INFUSION 30/JAN/2021
     Route: 042
     Dates: end: 20211201
  2. OCREVUS [Suspect]
     Active Substance: OCRELIZUMAB
     Dosage: TWO DOSES
     Route: 065
     Dates: start: 201707
  3. METHYLPREDNISOLONE [Concomitant]
     Active Substance: METHYLPREDNISOLONE
     Route: 042
  4. ACETAMINOPHEN [Concomitant]
     Active Substance: ACETAMINOPHEN
     Route: 048
  5. DIPHENHYDRAMINE [Concomitant]
     Active Substance: DIPHENHYDRAMINE
     Route: 048
  6. ELAVIL [Concomitant]
     Active Substance: AMITRIPTYLINE HYDROCHLORIDE
     Route: 048
  7. MOBIC [Concomitant]
     Active Substance: MELOXICAM
     Route: 048
  8. PRILOSEC [Concomitant]
     Active Substance: OMEPRAZOLE MAGNESIUM
     Route: 048
  9. IMITREX [Concomitant]
     Active Substance: SUMATRIPTAN SUCCINATE
     Dosage: 6MG/0.5 ML
     Route: 058
  10. ZONEGRAN [Concomitant]
     Active Substance: ZONISAMIDE
     Route: 048
  11. COMIRNATY [Concomitant]
     Active Substance: TOZINAMERAN
     Dates: start: 20210827
  12. COMIRNATY [Concomitant]
     Active Substance: TOZINAMERAN
     Dates: start: 20210922

REACTIONS (3)
  - Headache [Unknown]
  - Vertigo [Unknown]
  - Fatigue [Unknown]
